FAERS Safety Report 26130158 (Version 1)
Quarter: 2025Q4

REPORT INFORMATION
  Report Type: Spontaneous
  Country: US (occurrence: US)
  Receive Date: 20251208
  Receipt Date: 20251208
  Transmission Date: 20260118
  Serious: No
  Sender: UROGEN PHARMA
  Company Number: US-UROGEN PHARMA LTD.-2025-UGN-000193

PATIENT

DRUGS (4)
  1. ZUSDURI [Suspect]
     Active Substance: MITOMYCIN
     Indication: Bladder transitional cell carcinoma
     Dosage: UNK, ONCE A WEEK,(INSTILLATION)
     Dates: start: 20250930, end: 20250930
  2. ZUSDURI [Suspect]
     Active Substance: MITOMYCIN
     Dosage: UNK, ONCE A WEEK,(INSTILLATION)
     Dates: start: 20251007, end: 20251007
  3. ZUSDURI [Suspect]
     Active Substance: MITOMYCIN
     Dosage: UNK, ONCE A WEEK,(INSTILLATION)
     Dates: start: 20251014, end: 20251014
  4. ZUSDURI [Suspect]
     Active Substance: MITOMYCIN
     Dosage: UNK, ONCE A WEEK,(INSTILLATION)
     Dates: start: 20251021, end: 20251021

REACTIONS (2)
  - Urethral injury [Unknown]
  - Haemorrhage [Unknown]

NARRATIVE: CASE EVENT DATE: 20251014
